FAERS Safety Report 24575782 (Version 1)
Quarter: 2024Q4

REPORT INFORMATION
  Report Type: Spontaneous
  Country: US (occurrence: None)
  Receive Date: 20241101
  Receipt Date: 20241101
  Transmission Date: 20250115
  Serious: Yes (Congenital Anomaly)
  Sender: Public
  Company Number: None

PATIENT
  Age: 40 Year
  Sex: Female

DRUGS (7)
  1. LAMOTRIGINE [Suspect]
     Active Substance: LAMOTRIGINE
     Indication: Cyclothymic disorder
     Dosage: FREQUENCY : DAILY;?
     Route: 048
     Dates: start: 20170101
  2. Prenatal DHA+Folic Acid 800mcg [Concomitant]
     Dates: start: 20220301
  3. FISH OIL [Concomitant]
     Active Substance: FISH OIL
     Dates: start: 20200101
  4. FERROUS SULFATE [Concomitant]
     Active Substance: FERROUS SULFATE
     Dates: start: 20020501
  5. FIBER THERAPY (CALCIUM POLYCARBOPHIL) [Concomitant]
     Active Substance: CALCIUM POLYCARBOPHIL
     Dates: start: 20200101
  6. Vitamin D3 2000IU [Concomitant]
     Dates: start: 20180101
  7. CLONAZEPAM [Concomitant]
     Active Substance: CLONAZEPAM

REACTIONS (5)
  - Maternal exposure during pregnancy [None]
  - Neural tube defect [None]
  - Brain herniation [None]
  - Cerebral ventricle dilatation [None]
  - Congenital musculoskeletal disorder of skull [None]

NARRATIVE: CASE EVENT DATE: 20241011
